FAERS Safety Report 10257182 (Version 1)
Quarter: 2014Q2

REPORT INFORMATION
  Report Type: Spontaneous
  Country: US (occurrence: FR)
  Receive Date: 20140625
  Receipt Date: 20140625
  Transmission Date: 20141212
  Serious: Yes (Other)
  Sender: FDA-Public Use
  Company Number: 2013SP006396

PATIENT
  Age: 34 Year
  Sex: Female
  Weight: 76.1 kg

DRUGS (6)
  1. CYTARABINE [Suspect]
     Indication: ACUTE LYMPHOCYTIC LEUKAEMIA
     Route: 042
     Dates: start: 20130808, end: 20130813
  2. FLUDARABINE [Suspect]
     Indication: ACUTE LYMPHOCYTIC LEUKAEMIA
     Route: 042
     Dates: start: 20130802, end: 20130813
  3. FILGRASTIM [Suspect]
     Indication: PRODUCT USED FOR UNKNOWN INDICATION
     Route: 042
     Dates: start: 20130816
  4. ACICLOVIR [Concomitant]
     Indication: ANTIVIRAL PROPHYLAXIS
     Route: 042
     Dates: start: 20130816
  5. PHLOROGLUCINOL [Concomitant]
     Indication: GASTRIC DISORDER
     Route: 048
     Dates: start: 20130821
  6. LENOGRASTIM [Concomitant]
     Route: 042

REACTIONS (4)
  - Hyperbilirubinaemia [Recovered/Resolved]
  - Weight increased [Unknown]
  - Oedema [Unknown]
  - Ascites [Unknown]
